FAERS Safety Report 21762439 (Version 1)
Quarter: 2022Q4

REPORT INFORMATION
  Report Type: Spontaneous
  Country: US (occurrence: None)
  Receive Date: 20221220
  Receipt Date: 20221220
  Transmission Date: 20230113
  Serious: No
  Sender: FDA-Public Use
  Company Number: None

PATIENT

DRUGS (2)
  1. OXALIPLATIN [Suspect]
     Active Substance: OXALIPLATIN
     Route: 042
  2. MITOMYCIN [Suspect]
     Active Substance: MITOMYCIN

REACTIONS (2)
  - Product label confusion [None]
  - Product outer packaging issue [None]
